FAERS Safety Report 16010847 (Version 1)
Quarter: 2019Q1

REPORT INFORMATION
  Report Type: Spontaneous
  Country: US (occurrence: US)
  Receive Date: 20190227
  Receipt Date: 20190227
  Transmission Date: 20190418
  Serious: No
  Sender: FDA-Public Use
  Company Number: US-CHARTWELL PHARMA-2063255

PATIENT
  Sex: Female

DRUGS (2)
  1. DOXYCYCLINE HYCLATE. [Suspect]
     Active Substance: DOXYCYCLINE HYCLATE
     Indication: PRODUCT USED FOR UNKNOWN INDICATION
  2. CALCIUM [Suspect]
     Active Substance: CALCIUM

REACTIONS (1)
  - Dehydration [Unknown]
